FAERS Safety Report 9334227 (Version 1)
Quarter: 2013Q2

REPORT INFORMATION
  Report Type: Spontaneous
  Country: GB (occurrence: None)
  Receive Date: 20130604
  Receipt Date: 20130604
  Transmission Date: 20140414
  Serious: Yes (Hospitalization)
  Sender: FDA-Public Use
  Company Number: GER/UKI/13/0029779

PATIENT
  Age: 72 Year
  Sex: Male

DRUGS (1)
  1. LEVETIRACETAM (LEVETIRACETAM) [Suspect]
     Indication: EPILEPSY
     Dosage: 500MG, 2 IN 1D, ORAL
     Route: 048
     Dates: start: 20130220, end: 20130501

REACTIONS (4)
  - Aggression [None]
  - Agitation [None]
  - Cognitive disorder [None]
  - Drug withdrawal syndrome [None]
